FAERS Safety Report 14359380 (Version 1)
Quarter: 2018Q1

REPORT INFORMATION
  Report Type: Spontaneous
  Country: US (occurrence: US)
  Receive Date: 20180105
  Receipt Date: 20180105
  Transmission Date: 20180509
  Serious: No
  Sender: FDA-Public Use
  Company Number: US-SA-2017SA169942

PATIENT
  Age: 81 Year
  Sex: Male
  Weight: 83.5 kg

DRUGS (6)
  1. ZANTAC [Suspect]
     Active Substance: RANITIDINE HYDROCHLORIDE
     Indication: RENAL IMPAIRMENT
     Route: 048
  2. FINASTERIDE. [Concomitant]
     Active Substance: FINASTERIDE
  3. RAPAFLO [Concomitant]
     Active Substance: SILODOSIN
  4. MULTAQ [Concomitant]
     Active Substance: DRONEDARONE
  5. ZETIA [Concomitant]
     Active Substance: EZETIMIBE
  6. ELIQUIS [Concomitant]
     Active Substance: APIXABAN

REACTIONS (1)
  - Therapeutic response decreased [Unknown]
